FAERS Safety Report 25499789 (Version 1)
Quarter: 2025Q3

REPORT INFORMATION
  Report Type: Spontaneous
  Country: US (occurrence: None)
  Receive Date: 20250701
  Receipt Date: 20250701
  Transmission Date: 20251020
  Serious: Yes (Other)
  Sender: FDA-CTU
  Company Number: None

PATIENT
  Age: 84 Year
  Sex: Male

DRUGS (1)
  1. ABIRATERONE ACETATE [Suspect]
     Active Substance: ABIRATERONE ACETATE
     Indication: Prostate cancer
     Dosage: TAKE 1 TABLET (500 MG) BY MOUTH TWICE DAILY
     Route: 048
     Dates: start: 20250421

REACTIONS (1)
  - Thrombosis [None]

NARRATIVE: CASE EVENT DATE: 20250621
